FAERS Safety Report 5504310-6 (Version None)
Quarter: 2007Q4

REPORT INFORMATION
  Report Type: 
  Country: None (occurrence: None)
  Receive Date: 20071101
  Receipt Date: 20071024
  Transmission Date: 20080405
  Serious: Yes (Death, Hospitalization)
  Sender: FDA-Public Use
  Company Number: US-SHR-US-2007-033366

PATIENT
  Age: 57 Year
  Sex: Male

DRUGS (6)
  1. BETASERON [Suspect]
     Indication: PROGRESSIVE MULTIPLE SCLEROSIS
     Dosage: 8 MIU, UNK
     Route: 058
     Dates: start: 20030630, end: 20070820
  2. ARICEPT [Concomitant]
     Dosage: 10 MG, 1X/DAY
  3. MIRAPEX [Concomitant]
     Dosage: .25 MG, BED T.
  4. DEPAKOTE [Concomitant]
     Dosage: 1000 MG, BED T./AT NIGHT
  5. DEPAKOTE [Concomitant]
     Dosage: 250 MG, IN THE MORNING
  6. NEXIUM [Concomitant]
     Dosage: 40 MG, IN THE MORNING

REACTIONS (5)
  - ALANINE AMINOTRANSFERASE INCREASED [None]
  - ASPARTATE AMINOTRANSFERASE INCREASED [None]
  - CONVULSION [None]
  - MULTIPLE SCLEROSIS [None]
  - PNEUMONIA ASPIRATION [None]
